FAERS Safety Report 7920998-4 (Version None)
Quarter: 2011Q4

REPORT INFORMATION
  Report Type: 
  Country: None (occurrence: None)
  Receive Date: 20111117
  Receipt Date: 20111111
  Transmission Date: 20120403
  Serious: Yes (Hospitalization)
  Sender: FDA-Public Use
  Company Number: DE-TEVA-309148GER

PATIENT
  Sex: Male

DRUGS (1)
  1. AMOXICILLIN [Suspect]
     Indication: TONSILLAR INFLAMMATION
     Route: 048

REACTIONS (4)
  - INFLAMMATION [None]
  - OPTIC NEURITIS [None]
  - VISUAL IMPAIRMENT [None]
  - HEADACHE [None]
